FAERS Safety Report 19261398 (Version 1)
Quarter: 2021Q2

REPORT INFORMATION
  Report Type: Spontaneous
  Country: IE (occurrence: IE)
  Receive Date: 20210515
  Receipt Date: 20210515
  Transmission Date: 20210717
  Serious: Yes (Other)
  Sender: FDA-Public Use
  Company Number: NVSC2021IE102256

PATIENT
  Sex: Male

DRUGS (5)
  1. ENTRESTO [Suspect]
     Active Substance: SACUBITRIL\VALSARTAN
     Indication: HYPERTENSION
  2. FUROSEMIDE. [Concomitant]
     Active Substance: FUROSEMIDE
     Indication: PRODUCT USED FOR UNKNOWN INDICATION
     Dosage: 20 MG
     Route: 048
  3. BISOPROLOL [Concomitant]
     Active Substance: BISOPROLOL
     Indication: PRODUCT USED FOR UNKNOWN INDICATION
     Dosage: 7.5 MG
     Route: 048
  4. ENTRESTO [Suspect]
     Active Substance: SACUBITRIL\VALSARTAN
     Indication: CARDIAC FAILURE
     Dosage: UNK (STARTED IN 2021)
     Route: 065
  5. NUPRIN [Concomitant]
     Active Substance: IBUPROFEN
     Indication: PRODUCT USED FOR UNKNOWN INDICATION
     Dosage: 75 MG
     Route: 048

REACTIONS (17)
  - Sinus congestion [Recovering/Resolving]
  - Fatigue [Recovering/Resolving]
  - Head discomfort [Recovered/Resolved]
  - Headache [Recovered/Resolved]
  - Nausea [Unknown]
  - Musculoskeletal chest pain [Recovering/Resolving]
  - Cough [Unknown]
  - Pain in extremity [Recovering/Resolving]
  - Gastritis [Unknown]
  - Back pain [Recovering/Resolving]
  - Acute kidney injury [Unknown]
  - Ear congestion [Recovering/Resolving]
  - Dizziness [Unknown]
  - Arthralgia [Recovering/Resolving]
  - Muscle twitching [Unknown]
  - Blood pressure decreased [Unknown]
  - Asthenia [Recovering/Resolving]
